FAERS Safety Report 15397204 (Version 2)
Quarter: 2018Q4

REPORT INFORMATION
  Report Type: Spontaneous
  Country: TW (occurrence: TW)
  Receive Date: 20180918
  Receipt Date: 20181005
  Transmission Date: 20190204
  Serious: Yes (Disabling, Other)
  Sender: FDA-Public Use
  Company Number: TW-AMGEN-TWNSP2018126993

PATIENT
  Age: 58 Year
  Sex: Male

DRUGS (9)
  1. PROLIA [Suspect]
     Active Substance: DENOSUMAB
     Indication: OSTEOMALACIA
     Dosage: UNK
     Route: 065
  2. PHOSPHATE [Concomitant]
     Active Substance: UNSPECIFIED INGREDIENT
     Dosage: UNK
  3. TDF [Suspect]
     Active Substance: DILOXANIDE FUROATE\TINIDAZOLE
     Indication: HEPATITIS B
     Dosage: UNK
     Route: 065
  4. VITAMIN D3 [Concomitant]
     Active Substance: CHOLECALCIFEROL
     Dosage: UNK
  5. PROLIA [Suspect]
     Active Substance: DENOSUMAB
     Indication: OSTEOPOROSIS
  6. VIREAD [Suspect]
     Active Substance: TENOFOVIR DISOPROXIL FUMARATE
     Indication: HEPATITIS B
     Dosage: UNK
     Route: 065
  7. ENTECAVIR. [Concomitant]
     Active Substance: ENTECAVIR
     Indication: HEPATITIS B
     Dosage: UNK
  8. POTASSIUM CITRATE. [Concomitant]
     Active Substance: POTASSIUM CITRATE
     Dosage: UNK
  9. PROLIA [Suspect]
     Active Substance: DENOSUMAB
     Indication: FANCONI SYNDROME

REACTIONS (5)
  - Fanconi syndrome acquired [Recovered/Resolved]
  - Unintentional use for unapproved indication [Unknown]
  - Osteomalacia [Recovered/Resolved]
  - Hypophosphataemia [Recovered/Resolved]
  - Stress fracture [Recovered/Resolved]
